FAERS Safety Report 7547057-7 (Version None)
Quarter: 2011Q2

REPORT INFORMATION
  Report Type: 
  Country: None (occurrence: None)
  Receive Date: 20110614
  Receipt Date: 20110606
  Transmission Date: 20111010
  Serious: Yes (Other)
  Sender: FDA-Public Use
  Company Number: DE-B.I. PHARMACEUTICALS,INC./RIDGEFIELD-2011-DE-03448DE

PATIENT
  Sex: Male
  Weight: 100 kg

DRUGS (5)
  1. SOTALOL HCL [Suspect]
     Dosage: ONCE 45 TABLETS
     Route: 048
  2. TELMISARTAN [Suspect]
     Dosage: ONCE 3  TABLETS
     Route: 048
  3. LOSARTAN POTASSIUM [Suspect]
     Dosage: ONCE 30 TABLETS
     Route: 048
  4. BISOPROLOL FUMARATE [Suspect]
     Dosage: ONCE 3  TABLETS
     Route: 048
  5. MICARDIS HCT [Suspect]
     Dosage: ONCE 28 TABLETS
     Route: 048

REACTIONS (3)
  - ABDOMINAL PAIN [None]
  - SUICIDE ATTEMPT [None]
  - TORSADE DE POINTES [None]
